FAERS Safety Report 7077384 (Version 2)
Quarter: 2014Q1

REPORT INFORMATION
  Report Type: Spontaneous
  Country: US (occurrence: None)
  Receive Date: 20090803
  Receipt Date: 20140130
  Transmission Date: 20141002
  Serious: Yes (Hospitalization, Other)
  Sender: FDA-Public Use
  Company Number: 2009S1005943

PATIENT
  Age: 65 Year
  Sex: Female

DRUGS (1)
  1. FLEET PHOSPHO-SODA [Suspect]
     Indication: COLONOSCOPY
     Dosage: ; PO
     Route: 048

REACTIONS (3)
  - Renal failure chronic [None]
  - Urinary tract infection [None]
  - Bronchitis [None]
